FAERS Safety Report 16646953 (Version 1)
Quarter: 2019Q3

REPORT INFORMATION
  Report Type: Report from Study
  Country: US (occurrence: US)
  Receive Date: 20190730
  Receipt Date: 20190730
  Transmission Date: 20191004
  Serious: Yes (Other)
  Sender: FDA-Public Use
  Company Number: US-ROCHE-2364264

PATIENT
  Age: 41 Year
  Sex: Female
  Weight: 107.05 kg

DRUGS (1)
  1. XOLAIR [Suspect]
     Active Substance: OMALIZUMAB
     Indication: ASTHMA
     Dosage: ONGOING : UNKNOWN?SYRINGE?ON 31/JAN/2018, SHE RECEIVED LAST INJECTION.
     Route: 058

REACTIONS (2)
  - Lymphoma [Unknown]
  - Sarcoidosis [Unknown]

NARRATIVE: CASE EVENT DATE: 201804
